FAERS Safety Report 17888819 (Version 2)
Quarter: 2020Q2

REPORT INFORMATION
  Report Type: Spontaneous
  Country: FR (occurrence: FR)
  Receive Date: 20200612
  Receipt Date: 20200615
  Transmission Date: 20200714
  Serious: Yes (Other)
  Sender: FDA-Public Use
  Company Number: FR-ENDO PHARMACEUTICALS INC-2020-004143

PATIENT
  Age: 3 Decade

DRUGS (5)
  1. DISULFIRAM. [Suspect]
     Active Substance: DISULFIRAM
     Dosage: 250 MG, (UNKNOWN) X 3 DAYS
     Route: 065
  2. DISULFIRAM. [Suspect]
     Active Substance: DISULFIRAM
     Indication: LYME DISEASE
     Dosage: 250 MG, THREE PER DAY X 1WK
     Route: 065
  3. DISULFIRAM. [Suspect]
     Active Substance: DISULFIRAM
     Dosage: 500 MG,(UNKNOWN) X 10 DAYS
     Route: 065
  4. DISULFIRAM. [Suspect]
     Active Substance: DISULFIRAM
     Dosage: 250 MG, DAILY X 1 WK
     Route: 065
  5. DISULFIRAM. [Suspect]
     Active Substance: DISULFIRAM
     Dosage: 250 MG, TWO PER DAY X1WK
     Route: 065

REACTIONS (12)
  - Arthralgia [Unknown]
  - Hyperacusis [Unknown]
  - Anxiety [Unknown]
  - Cranial nerve disorder [Unknown]
  - Insomnia [Unknown]
  - Tinnitus [Unknown]
  - Gastrointestinal motility disorder [Unknown]
  - Tremor [Unknown]
  - Off label use [Recovered/Resolved]
  - Headache [Unknown]
  - Suicidal ideation [Unknown]
  - Hot flush [Unknown]
